FAERS Safety Report 11134966 (Version 2)
Quarter: 2015Q2

REPORT INFORMATION
  Report Type: Spontaneous
  Country: ES (occurrence: ES)
  Receive Date: 20150525
  Receipt Date: 20150529
  Transmission Date: 20150821
  Serious: Yes (Other)
  Sender: FDA-Public Use
  Company Number: ES-B.I. PHARMACEUTICALS,INC./RIDGEFIELD-2015-BI-26175ES

PATIENT
  Age: 50 Year
  Sex: Female

DRUGS (6)
  1. MIRAPEXIN [Suspect]
     Active Substance: PRAMIPEXOLE
     Dosage: 0.54 MG
     Route: 065
     Dates: start: 201409
  2. MIRAPEXIN [Suspect]
     Active Substance: PRAMIPEXOLE
     Dosage: 0.26 MG
     Route: 065
     Dates: start: 20150522
  3. APOMORPHINE [Suspect]
     Active Substance: APOMORPHINE
     Indication: PARKINSON^S DISEASE
     Dosage: DAILY DOSE: 0.47 AND MAX DOSE AT 0.63
     Route: 065
     Dates: start: 201409
  4. SINEMET [Concomitant]
     Active Substance: CARBIDOPA\LEVODOPA
     Indication: PARKINSON^S DISEASE
     Dosage: 1 ANZ
     Route: 065
  5. MIRAPEXIN [Suspect]
     Active Substance: PRAMIPEXOLE
     Indication: PARKINSON^S DISEASE
     Dosage: 2.1 MG
     Route: 065
     Dates: end: 201409
  6. AZILECT [Concomitant]
     Active Substance: RASAGILINE MESYLATE
     Indication: PARKINSON^S DISEASE
     Dosage: 1 ANZ
     Route: 065

REACTIONS (2)
  - Parkinsonian crisis [Not Recovered/Not Resolved]
  - Drug interaction [Not Recovered/Not Resolved]

NARRATIVE: CASE EVENT DATE: 201409
